FAERS Safety Report 15118238 (Version 2)
Quarter: 2018Q3

REPORT INFORMATION
  Report Type: Spontaneous
  Country: US (occurrence: US)
  Receive Date: 20180708
  Receipt Date: 20180709
  Transmission Date: 20181010
  Serious: Yes (Disabling)
  Sender: FDA-Public Use
  Company Number: US-JNJFOC-20180630745

PATIENT
  Age: 35 Year
  Sex: Female

DRUGS (2)
  1. PREDNISONE. [Concomitant]
     Active Substance: PREDNISONE
     Route: 065
  2. STELARA [Suspect]
     Active Substance: USTEKINUMAB
     Indication: CROHN^S DISEASE
     Dosage: DRUG START DATE: 1?JUN
     Route: 042
     Dates: start: 20180601

REACTIONS (1)
  - Arthralgia [Unknown]

NARRATIVE: CASE EVENT DATE: 201806
